FAERS Safety Report 4867856-X (Version None)
Quarter: 2005Q4

REPORT INFORMATION
  Report Type: 
  Country: None (occurrence: None)
  Receive Date: 20051227
  Receipt Date: 20050731
  Transmission Date: 20060501
  Serious: Yes (Other)
  Sender: FDA-Public Use
  Company Number: GB-JNJFOC-20051204578

PATIENT
  Sex: 0

DRUGS (1)
  1. RISPERDAL [Suspect]

REACTIONS (1)
  - BREAST CANCER [None]
